FAERS Safety Report 8829747 (Version 3)
Quarter: 2012Q4

REPORT INFORMATION
  Report Type: Report from Study
  Country: US (occurrence: US)
  Receive Date: 20121008
  Receipt Date: 20121017
  Transmission Date: 20130627
  Serious: Yes (Hospitalization)
  Sender: FDA-Public Use
  Company Number: US-JNJFOC-20121003979

PATIENT
  Age: 16 Year
  Sex: Female
  Weight: 59.5 kg

DRUGS (4)
  1. REMICADE [Suspect]
     Indication: CROHN^S DISEASE
     Route: 042
     Dates: start: 20090923
  2. PREDNISONE [Suspect]
     Indication: CROHN^S DISEASE
  3. HUMIRA [Concomitant]
     Dates: start: 20100528
  4. METHOTREXATE [Concomitant]

REACTIONS (3)
  - Crohn^s disease [Recovered/Resolved with Sequelae]
  - Iritis [Recovered/Resolved]
  - Pneumonia mycoplasmal [Recovered/Resolved]
